FAERS Safety Report 14082091 (Version 2)
Quarter: 2018Q1

REPORT INFORMATION
  Report Type: Spontaneous
  Country: GB (occurrence: GB)
  Receive Date: 20171011
  Receipt Date: 20180118
  Transmission Date: 20180508
  Serious: Yes (Disabling, Other)
  Sender: FDA-Public Use
  Company Number: GB-MICRO LABS LIMITED-BB2017-01408

PATIENT
  Age: 67 Year
  Sex: Male
  Weight: 81.3 kg

DRUGS (7)
  1. TICAGRELOR. [Interacting]
     Active Substance: TICAGRELOR
     Indication: STENT PLACEMENT
     Dosage: UNK
     Route: 048
     Dates: start: 201701, end: 201705
  2. TICAGRELOR. [Interacting]
     Active Substance: TICAGRELOR
     Indication: MYOCARDIAL ISCHAEMIA
  3. GLICLAZIDE [Concomitant]
     Active Substance: GLICLAZIDE
     Indication: DIABETES MELLITUS
     Route: 065
  4. SILDENAFIL. [Concomitant]
     Active Substance: SILDENAFIL
     Indication: ERECTILE DYSFUNCTION
     Route: 065
  5. SIMVASTATIN. [Suspect]
     Active Substance: SIMVASTATIN
     Indication: MYOCARDIAL ISCHAEMIA
     Dosage: 80 MG, DOSING UNKNOWN
     Route: 048
     Dates: end: 201705
  6. OMEPRAZOLE. [Concomitant]
     Active Substance: OMEPRAZOLE
     Indication: DYSPEPSIA
     Route: 065
  7. BISOPROLOL [Concomitant]
     Active Substance: BISOPROLOL
     Indication: MYOCARDIAL ISCHAEMIA
     Route: 048

REACTIONS (3)
  - Overdose [Unknown]
  - Myelofibrosis [Not Recovered/Not Resolved]
  - Drug interaction [Unknown]

NARRATIVE: CASE EVENT DATE: 20170101
